FAERS Safety Report 13058320 (Version 2)
Quarter: 2017Q1

REPORT INFORMATION
  Report Type: Spontaneous
  Country: US (occurrence: US)
  Receive Date: 20161223
  Receipt Date: 20170203
  Transmission Date: 20170428
  Serious: No
  Sender: FDA-Public Use
  Company Number: US-009507513-1612USA005644

PATIENT
  Sex: Female

DRUGS (1)
  1. NEXPLANON [Suspect]
     Active Substance: ETONOGESTREL
     Indication: CONTRACEPTION
     Dosage: 1 IMPLANT, UNK
     Dates: start: 201301

REACTIONS (5)
  - Incorrect drug administration duration [Unknown]
  - Device difficult to use [Unknown]
  - Device deployment issue [Unknown]
  - Complication associated with device [Unknown]
  - Complication of device removal [Unknown]
